FAERS Safety Report 4386813-3 (Version None)
Quarter: 2004Q2

REPORT INFORMATION
  Report Type: 
  Country: None (occurrence: None)
  Receive Date: 20040623
  Receipt Date: 20040607
  Transmission Date: 20050107
  Serious: No
  Sender: FDA-Public Use
  Company Number: B0335146A

PATIENT
  Age: 6 Year
  Sex: Male

DRUGS (2)
  1. PAXIL [Suspect]
     Indication: OBSESSIVE-COMPULSIVE PERSONALITY DISORDER
  2. CARBAMAZEPINE [Concomitant]

REACTIONS (5)
  - BRUXISM [None]
  - DYSTONIA [None]
  - GRAND MAL CONVULSION [None]
  - GRIMACING [None]
  - RESPIRATORY DISORDER [None]
